FAERS Safety Report 8644468 (Version 6)
Quarter: 2013Q1

REPORT INFORMATION
  Report Type: Spontaneous
  Country: US (occurrence: US)
  Receive Date: 20120629
  Receipt Date: 20130222
  Transmission Date: 20140127
  Serious: Yes (Other)
  Sender: FDA-Public Use
  Company Number: US-PFIZER INC-2012155763

PATIENT
  Age: 76 Year
  Sex: Male
  Weight: 85.26 kg

DRUGS (3)
  1. LYRICA [Suspect]
     Indication: LIMB DISCOMFORT
     Dosage: 75 MG, 3X/DAY
  2. LYRICA [Suspect]
     Indication: DIABETES MELLITUS
  3. LYRICA [Suspect]
     Indication: NERVOUS SYSTEM DISORDER

REACTIONS (6)
  - Drug withdrawal syndrome [Recovered/Resolved]
  - Suicidal ideation [Recovered/Resolved]
  - Malaise [Recovered/Resolved]
  - Feeling abnormal [Recovered/Resolved]
  - Nervousness [Recovered/Resolved]
  - Limb discomfort [Recovered/Resolved]
